FAERS Safety Report 19098368 (Version 2)
Quarter: 2021Q2

REPORT INFORMATION
  Report Type: Spontaneous
  Country: RO (occurrence: RO)
  Receive Date: 20210406
  Receipt Date: 20210504
  Transmission Date: 20210717
  Serious: Yes (Other)
  Sender: FDA-Public Use
  Company Number: RO-ASTRAZENECA-2021A239796

PATIENT
  Sex: Male

DRUGS (6)
  1. DURVALUMAB. [Suspect]
     Active Substance: DURVALUMAB
     Indication: NON-SMALL CELL LUNG CANCER STAGE III
     Route: 042
     Dates: start: 202102, end: 202102
  2. AZITHROMYCIN ANHYDROUS. [Concomitant]
     Active Substance: AZITHROMYCIN ANHYDROUS
     Route: 042
  3. CONVALESCENT PLASMA [Concomitant]
     Active Substance: HUMAN PLASMA
  4. CHLOROQUINE. [Concomitant]
     Active Substance: CHLOROQUINE
     Route: 042
  5. TOCILIZUMAB. [Concomitant]
     Active Substance: TOCILIZUMAB
     Route: 042
  6. HYDROXYCHLOROQUINE [Concomitant]
     Active Substance: HYDROXYCHLOROQUINE
     Route: 042

REACTIONS (3)
  - Dementia [Unknown]
  - Delirium [Unknown]
  - COVID-19 [Recovered/Resolved]
